FAERS Safety Report 21302049 (Version 12)
Quarter: 2023Q2

REPORT INFORMATION
  Report Type: Report from Study
  Country: US (occurrence: US)
  Receive Date: 20220907
  Receipt Date: 20230517
  Transmission Date: 20230721
  Serious: No
  Sender: FDA-Public Use
  Company Number: US-NOVARTISTESTPH-NVSC2022US201424

PATIENT
  Sex: Female

DRUGS (2)
  1. COSENTYX [Suspect]
     Active Substance: SECUKINUMAB
     Indication: Psoriatic arthropathy
     Dosage: 300 MG, QMO
     Route: 058
     Dates: start: 202206
  2. COSENTYX [Suspect]
     Active Substance: SECUKINUMAB
     Indication: Psoriasis
     Dosage: UNK
     Route: 058

REACTIONS (16)
  - Arthralgia [Unknown]
  - Sensitivity to weather change [Unknown]
  - Injection site pain [Unknown]
  - Skin hypertrophy [Unknown]
  - Pruritus [Unknown]
  - Pain in extremity [Unknown]
  - Headache [Recovering/Resolving]
  - Product quality issue [Unknown]
  - Therapeutic response unexpected [Unknown]
  - Device defective [Unknown]
  - Arthropathy [Unknown]
  - Nasopharyngitis [Unknown]
  - Psoriasis [Unknown]
  - Drug ineffective [Unknown]
  - Incorrect dose administered [Unknown]
  - Inappropriate schedule of product administration [Unknown]
